FAERS Safety Report 25998664 (Version 1)
Quarter: 2025Q4

REPORT INFORMATION
  Report Type: Spontaneous
  Country: US (occurrence: None)
  Receive Date: 20251105
  Receipt Date: 20251105
  Transmission Date: 20260119
  Serious: Yes (Hospitalization)
  Sender: ENCUBE ETHICALS PVT. LTD.
  Company Number: US-Encube-002572

PATIENT
  Age: 88 Year
  Sex: Male

DRUGS (12)
  1. IMIQUIMOD [Suspect]
     Active Substance: IMIQUIMOD
     Indication: Basal cell carcinoma
     Dosage: 5 %,  FOR THREE DAYS
  2. ATORVASTATIN [Concomitant]
     Active Substance: ATORVASTATIN
     Indication: Hypercholesterolaemia
  3. FERROUS SULFATE [Concomitant]
     Active Substance: FERROUS SULFATE
  4. DOCUSATE SODIUM [Concomitant]
     Active Substance: DOCUSATE SODIUM
  5. SERTRALINE [Concomitant]
     Active Substance: SERTRALINE HYDROCHLORIDE
  6. TAMSULOSIN [Concomitant]
     Active Substance: TAMSULOSIN
  7. LISINOPRIL [Concomitant]
     Active Substance: LISINOPRIL
  8. METFORMIN [Concomitant]
     Active Substance: METFORMIN HYDROCHLORIDE
     Indication: Diabetes mellitus
  9. PANTOPRAZOLE [Concomitant]
     Active Substance: PANTOPRAZOLE
  10. ASPIRIN [Concomitant]
     Active Substance: ASPIRIN
  11. ASPIRIN W/DIPYRIDAMOLE [Concomitant]
  12. BISOPROLOL [Concomitant]
     Active Substance: BISOPROLOL

REACTIONS (8)
  - Myalgia [Recovered/Resolved]
  - Dyspnoea [Recovered/Resolved]
  - Wheezing [Recovered/Resolved]
  - Cough [Recovered/Resolved]
  - Chills [Recovered/Resolved]
  - Asthenia [Recovered/Resolved]
  - Gait inability [Recovered/Resolved]
  - Off label use [Unknown]
